FAERS Safety Report 9838644 (Version 2)
Quarter: 2014Q1

REPORT INFORMATION
  Report Type: Spontaneous
  Country: US (occurrence: US)
  Receive Date: 20140123
  Receipt Date: 20140225
  Transmission Date: 20141002
  Serious: Yes (Hospitalization, Other)
  Sender: FDA-Public Use
  Company Number: US-PFIZER INC-2014019981

PATIENT
  Age: 75 Year
  Sex: Male

DRUGS (4)
  1. LYRICA [Suspect]
     Indication: DIABETIC NEUROPATHY
     Dosage: UNK
     Dates: start: 2011
  2. LYRICA [Suspect]
     Dosage: 25 MG, 2X/DAY
     Dates: start: 2013
  3. LYRICA [Suspect]
     Dosage: 50 MG, 3X/DAY
     Dates: start: 2013
  4. LYRICA [Suspect]
     Dosage: UNK
     Dates: end: 201312

REACTIONS (7)
  - Paralysis [Recovered/Resolved]
  - Cystitis [Unknown]
  - Urine odour abnormal [Unknown]
  - Malaise [Unknown]
  - Drug hypersensitivity [Unknown]
  - Pain in extremity [Recovered/Resolved]
  - Myalgia [Recovered/Resolved]
